FAERS Safety Report 23874621 (Version 1)
Quarter: 2024Q2

REPORT INFORMATION
  Report Type: Spontaneous
  Country: US (occurrence: US)
  Receive Date: 20240520
  Receipt Date: 20240520
  Transmission Date: 20240716
  Serious: Yes (Hospitalization)
  Sender: FDA-Public Use
  Company Number: US-ORGANON-O2405USA001543

PATIENT
  Sex: Male
  Weight: 3.6 kg

DRUGS (2)
  1. NEXPLANON [Suspect]
     Active Substance: ETONOGESTREL
     Dosage: 1 IMPLANT, LEFT UPPER ARM
     Route: 064
     Dates: start: 20221130
  2. NEXPLANON [Concomitant]
     Active Substance: ETONOGESTREL
     Dosage: 1 IMPLANT
     Route: 064
     Dates: start: 201911, end: 20221130

REACTIONS (1)
  - Neonatal disorder [Unknown]

NARRATIVE: CASE EVENT DATE: 20240101
